FAERS Safety Report 4368348-7 (Version None)
Quarter: 2004Q2

REPORT INFORMATION
  Report Type: 
  Country: None (occurrence: None)
  Receive Date: 20040525
  Receipt Date: 20040311
  Transmission Date: 20050107
  Serious: Yes (Hospitalization)
  Sender: FDA-Public Use
  Company Number: 001 # 1 #2004-00067

PATIENT
  Age: 63 Year
  Sex: Male

DRUGS (8)
  1. ALPROSTADIL [Suspect]
     Indication: PERIPHERAL VASCULAR DISORDER
     Dosage: 2X2 AMP./DAY, PER INFUSION, TWO HOURS AT A TIME INTRAVENOUS DRIP
     Route: 041
     Dates: start: 20030330, end: 20030331
  2. ENALAPRIL MALEATE [Concomitant]
  3. ATORVASTATIN (ATORVASTATIN) [Concomitant]
  4. METILDIGOXIN (METILDIGOXIN) [Concomitant]
  5. CARVEDILOL [Concomitant]
  6. PREDNISOLONE [Concomitant]
  7. METAMIZOL NATRIUM (METAMIZOLE SODIUM) [Concomitant]
  8. PIRITRAMIDE (PIRITRAMIDE) [Concomitant]

REACTIONS (10)
  - BLOOD CREATINE INCREASED [None]
  - BLOOD POTASSIUM INCREASED [None]
  - CARDIAC ANEURYSM [None]
  - CARDIAC ARREST [None]
  - CORONARY ARTERY STENOSIS [None]
  - HEPATITIS TOXIC [None]
  - HYPOGLYCAEMIA [None]
  - VENTRICULAR DYSFUNCTION [None]
  - VENTRICULAR FLUTTER [None]
  - VOMITING [None]
